FAERS Safety Report 7692165 (Version 4)
Quarter: 2014Q1

REPORT INFORMATION
  Report Type: Spontaneous
  Country: US (occurrence: US)
  Receive Date: 20101204
  Receipt Date: 20140128
  Transmission Date: 20141002
  Serious: Yes (Other)
  Sender: FDA-Public Use
  Company Number: US-BAYER-2010-000699

PATIENT
  Age: 36 Year
  Sex: Female
  Weight: 49.89 kg

DRUGS (3)
  1. YASMIN [Suspect]
     Indication: PREMENSTRUAL SYNDROME
     Dosage: UNK
     Route: 048
     Dates: start: 200704
  2. BENAZEPRIL [Concomitant]
     Dosage: UNK
     Dates: start: 200806
  3. BENAZEPRIL W/HYDROCHLOROTHIAZIDE [Concomitant]
     Dosage: 25 MG, UNK
     Route: 048

REACTIONS (3)
  - Cholelithiasis [None]
  - Genital haemorrhage [None]
  - Hypertension [None]
